FAERS Safety Report 9785988 (Version 1)
Quarter: 2013Q4

REPORT INFORMATION
  Report Type: Report from Study
  Country: DZ (occurrence: DZ)
  Receive Date: 20131227
  Receipt Date: 20131227
  Transmission Date: 20140711
  Serious: Yes (Death)
  Sender: FDA-Public Use
  Company Number: DZ-SA-2013SA134884

PATIENT
  Age: 50 Year
  Sex: Female
  Weight: 105 kg

DRUGS (6)
  1. DOCETAXEL [Suspect]
     Indication: BREAST CANCER
     Route: 042
     Dates: start: 20091207, end: 20091207
  2. DOCETAXEL [Suspect]
     Indication: BREAST CANCER
     Route: 042
     Dates: start: 20091028, end: 20091028
  3. ONDANSETRON [Concomitant]
     Indication: ANTIEMETIC SUPPORTIVE CARE
     Route: 042
     Dates: start: 20091207, end: 20091207
  4. RANITIDINE [Concomitant]
     Indication: GASTRIC ULCER
     Route: 042
     Dates: start: 20091207, end: 20091207
  5. METHYLPREDNISOLONE [Concomitant]
     Indication: ANTIEMETIC SUPPORTIVE CARE
     Route: 042
     Dates: start: 20091207, end: 20091207
  6. CORTICOSTEROIDS [Concomitant]
     Indication: ANTIEMETIC SUPPORTIVE CARE
     Route: 048
     Dates: start: 20091206, end: 20091208

REACTIONS (2)
  - Death [Fatal]
  - Pleural effusion [Unknown]
